FAERS Safety Report 4569326-5 (Version None)
Quarter: 2005Q1

REPORT INFORMATION
  Report Type: 
  Country: None (occurrence: None)
  Receive Date: 20050201
  Receipt Date: 20050119
  Transmission Date: 20050727
  Serious: Yes (Death, Other)
  Sender: FDA-Public Use
  Company Number: 2005018998

PATIENT
  Sex: Male

DRUGS (2)
  1. LIPITOR [Suspect]
     Indication: ILL-DEFINED DISORDER
     Dosage: ORAL
     Route: 048
  2. CITRUS PARADISI FRUIT JUICE (CITRUS PARADISI FRUIT JUICE) [Concomitant]
     Indication: ILL-DEFINED DISORDER
     Dosage: 2-03 GLASSES JUICE (1D), ORAL
     Route: 048

REACTIONS (5)
  - DRUG INTERACTION [None]
  - FATIGUE [None]
  - MYALGIA [None]
  - PYREXIA [None]
  - RENAL FAILURE [None]
